FAERS Safety Report 14876750 (Version 1)
Quarter: 2018Q2

REPORT INFORMATION
  Report Type: Spontaneous
  Country: US (occurrence: US)
  Receive Date: 20180510
  Receipt Date: 20180510
  Transmission Date: 20180720
  Serious: Yes (Other)
  Sender: FDA-Public Use
  Company Number: US-BIO-PHARM, INC -2047564

PATIENT
  Age: 62 Year
  Sex: Male

DRUGS (1)
  1. LACTULOSE-ORAL-RECTAL SOLUTION [Suspect]
     Active Substance: LACTULOSE

REACTIONS (4)
  - Quadriparesis [None]
  - Hypernatraemia [None]
  - Osmotic demyelination syndrome [None]
  - Diarrhoea [Recovered/Resolved]
